FAERS Safety Report 18068169 (Version 1)
Quarter: 2020Q3

REPORT INFORMATION
  Report Type: Spontaneous
  Country: None (occurrence: CN)
  Receive Date: 20200724
  Receipt Date: 20200724
  Transmission Date: 20201103
  Serious: Yes (Death, Other)
  Sender: FDA-Public Use
  Company Number: CN-SAKK-2019SA014614AA

PATIENT

DRUGS (17)
  1. CYCLOPHOSPHAMIDE. [Suspect]
     Active Substance: CYCLOPHOSPHAMIDE
     Indication: X-LINKED LYMPHOPROLIFERATIVE SYNDROME
     Dosage: 200 MG/KG, OVER 4 DAYS ON DAYS ?5 TO ?2
  2. MYCOPHENOLATE MOFETIL. [Suspect]
     Active Substance: MYCOPHENOLATE MOFETIL
     Indication: PROPHYLAXIS AGAINST GRAFT VERSUS HOST DISEASE
     Dosage: 600 MG/M2/DAY BID PO FROM DAY + 1
     Route: 048
  3. MYCOPHENOLATE MOFETIL. [Suspect]
     Active Substance: MYCOPHENOLATE MOFETIL
     Dosage: GRADUALLY TAPERED OFF TO 300 MG/M 2 /D BY DAY +60 AND THEN DISCONTINUED
  4. CICLOSPORIN [Suspect]
     Active Substance: CYCLOSPORINE
     Indication: FAMILIAL HAEMOPHAGOCYTIC LYMPHOHISTIOCYTOSIS
     Dosage: UNK
  5. CICLOSPORIN [Suspect]
     Active Substance: CYCLOSPORINE
     Dosage: UNK
     Route: 048
  6. ANTI?THYMOCYTE GLOBULIN (RABBIT) NOS [Suspect]
     Active Substance: LAPINE T-LYMPHOCYTE IMMUNE GLOBULIN
     Indication: BONE MARROW CONDITIONING REGIMEN
     Dosage: 10 MG/KG
  7. FLUDARABINE PHOSPHATE. [Suspect]
     Active Substance: FLUDARABINE PHOSPHATE
     Indication: X-LINKED LYMPHOPROLIFERATIVE SYNDROME
     Dosage: 150 MG/M2 OVER 5 DAYS ON DAYS ?10 TO ?6
  8. ETOPOSIDE. [Suspect]
     Active Substance: ETOPOSIDE
     Indication: FAMILIAL HAEMOPHAGOCYTIC LYMPHOHISTIOCYTOSIS
     Dosage: AS INITIAL THERAPY FOR 2?4 WEEKS
  9. ETOPOSIDE. [Suspect]
     Active Substance: ETOPOSIDE
     Dosage: 2X
  10. DOXORUBICIN [Suspect]
     Active Substance: DOXORUBICIN
     Indication: X-LINKED LYMPHOPROLIFERATIVE SYNDROME
     Dosage: 2X
  11. METHOTREXATE. [Suspect]
     Active Substance: METHOTREXATE
     Indication: PROPHYLAXIS AGAINST GRAFT VERSUS HOST DISEASE
     Dosage: 15 MG/M2 IV ON DAY + 1, 10 MG/M2 ON DAYS +3, + 6, AND + 11
     Route: 042
  12. FLUDARABINE PHOSPHATE. [Suspect]
     Active Substance: FLUDARABINE PHOSPHATE
     Indication: BONE MARROW CONDITIONING REGIMEN
  13. ANTI?THYMOCYTE GLOBULIN (RABBIT) NOS [Suspect]
     Active Substance: LAPINE T-LYMPHOCYTE IMMUNE GLOBULIN
     Indication: X-LINKED LYMPHOPROLIFERATIVE SYNDROME
     Dosage: 2.5 MG/KG; OVER 4 DAYS ON DAYS ?5 TO ?2
  14. METHOTREXATE. [Suspect]
     Active Substance: METHOTREXATE
     Dosage: ADDITIONAL DOSE OF 10 MG/M 2  ON DAYS +3, +6, AND +11UNK
  15. CICLOSPORIN [Suspect]
     Active Substance: CYCLOSPORINE
     Indication: PROPHYLAXIS AGAINST GRAFT VERSUS HOST DISEASE
     Dosage: 2.5 MG/KG, Q12H, WAS ADMINISTERED FROM DAY?1
     Route: 042
  16. METHYLPREDNISOLONE. [Suspect]
     Active Substance: METHYLPREDNISOLONE
     Indication: FAMILIAL HAEMOPHAGOCYTIC LYMPHOHISTIOCYTOSIS
     Dosage: 2X
  17. CYCLOPHOSPHAMIDE. [Suspect]
     Active Substance: CYCLOPHOSPHAMIDE
     Indication: BONE MARROW CONDITIONING REGIMEN

REACTIONS (14)
  - Candida sepsis [Fatal]
  - Drug ineffective [Unknown]
  - Transplant failure [Unknown]
  - Diarrhoea [Unknown]
  - Gastrointestinal haemorrhage [Unknown]
  - Pancytopenia [Unknown]
  - Gastroenteritis rotavirus [Unknown]
  - Off label use [Unknown]
  - Graft versus host disease in gastrointestinal tract [Unknown]
  - Abdominal pain [Unknown]
  - Cytomegalovirus infection reactivation [Unknown]
  - Cytomegalovirus viraemia [Unknown]
  - Infection reactivation [Unknown]
  - Staphylococcal sepsis [Unknown]
